FAERS Safety Report 21200297 (Version 1)
Quarter: 2022Q3

REPORT INFORMATION
  Report Type: Spontaneous
  Country: GB (occurrence: GB)
  Receive Date: 20220811
  Receipt Date: 20220811
  Transmission Date: 20221026
  Serious: Yes (Other)
  Sender: FDA-Public Use
  Company Number: GB-MHRA-MED-202208021215173900-TPDNW

PATIENT
  Age: 64 Year
  Sex: Male

DRUGS (3)
  1. CIPROFLOXACIN [Suspect]
     Active Substance: CIPROFLOXACIN
     Indication: Adverse drug reaction
     Dosage: 500 MILLIGRAM, TWO TIMES A DAY
     Route: 065
     Dates: start: 20220725, end: 20220802
  2. ECULIZUMAB [Suspect]
     Active Substance: ECULIZUMAB
     Indication: Adverse drug reaction
     Dosage: 900 MG ONCE WEEKLY FOR 4 WEEKS; ;
     Route: 065
     Dates: start: 20220730
  3. NEFOPAM [Suspect]
     Active Substance: NEFOPAM
     Indication: Adverse drug reaction
     Dosage: 30 MILLIGRAM, 3 TIMES A DAY
     Dates: end: 20220802

REACTIONS (1)
  - Generalised tonic-clonic seizure [Recovering/Resolving]

NARRATIVE: CASE EVENT DATE: 20220801
